FAERS Safety Report 17152139 (Version 1)
Quarter: 2019Q4

REPORT INFORMATION
  Report Type: Spontaneous
  Country: US (occurrence: US)
  Receive Date: 20191213
  Receipt Date: 20191213
  Transmission Date: 20200122
  Serious: No
  Sender: FDA-Public Use
  Company Number: US-SOMERSET-2019-US-000027

PATIENT
  Sex: Female

DRUGS (1)
  1. OLOPATADINE HYDROCHLORIDE. [Suspect]
     Active Substance: OLOPATADINE HYDROCHLORIDE

REACTIONS (3)
  - Eyelid disorder [Recovered/Resolved]
  - Eye swelling [Recovered/Resolved]
  - Hypersensitivity [Recovered/Resolved with Sequelae]
